FAERS Safety Report 15495223 (Version 12)
Quarter: 2022Q3

REPORT INFORMATION
  Report Type: Report from Study
  Country: CO (occurrence: CO)
  Receive Date: 20181012
  Receipt Date: 20220810
  Transmission Date: 20221026
  Serious: Yes (Hospitalization, Other)
  Sender: FDA-Public Use
  Company Number: PHHY2018CO049848

PATIENT
  Age: 65 Year
  Sex: Female
  Weight: 66 kg

DRUGS (3)
  1. AFINITOR [Suspect]
     Active Substance: EVEROLIMUS
     Indication: Breast cancer
     Dosage: 10 MG, QD
     Route: 048
     Dates: start: 20180627
  2. AFINITOR [Suspect]
     Active Substance: EVEROLIMUS
     Dosage: UNK
     Route: 048
  3. EXEMESTANE [Suspect]
     Active Substance: EXEMESTANE
     Indication: Breast cancer
     Dosage: 10 MG, QD
     Route: 048

REACTIONS (21)
  - Depression [Unknown]
  - Myalgia [Unknown]
  - Bone pain [Unknown]
  - Vomiting [Unknown]
  - Hyperglycaemia [Unknown]
  - Diarrhoea [Unknown]
  - Decreased immune responsiveness [Not Recovered/Not Resolved]
  - Diabetes mellitus [Unknown]
  - Illness [Unknown]
  - Feeling abnormal [Recovered/Resolved]
  - Mood swings [Unknown]
  - Ill-defined disorder [Unknown]
  - Epistaxis [Unknown]
  - Pain [Unknown]
  - Malaise [Unknown]
  - Blood creatinine increased [Unknown]
  - Stomatitis [Not Recovered/Not Resolved]
  - Urticaria [Unknown]
  - Blood pressure increased [Unknown]
  - Headache [Unknown]
  - Weight decreased [Unknown]

NARRATIVE: CASE EVENT DATE: 20180701
